FAERS Safety Report 6542011-6 (Version None)
Quarter: 2010Q1

REPORT INFORMATION
  Report Type: 
  Country: None (occurrence: None)
  Receive Date: 20100119
  Receipt Date: 20100118
  Transmission Date: 20100710
  Serious: Yes (Death)
  Sender: FDA-Public Use
  Company Number: IT-ROCHE-679821

PATIENT
  Sex: Male

DRUGS (6)
  1. AVASTIN [Suspect]
     Indication: BRONCHIAL CARCINOMA
     Dosage: FREQUENCY TOTAL
     Route: 042
     Dates: start: 20100112, end: 20100112
  2. CARBOPLATINO [Suspect]
     Indication: BRONCHIAL CARCINOMA
     Dosage: FREQUENCY TOTAL
     Route: 042
     Dates: start: 20100112, end: 20100112
  3. ANZATAX [Suspect]
     Indication: BRONCHIAL CARCINOMA
     Dosage: DOSE REPORTED AS 62.7+300 MG, FREQUENCY TOTAL.
     Route: 042
     Dates: start: 20100112, end: 20100112
  4. ZOFRAN [Concomitant]
     Indication: PROPHYLAXIS OF NAUSEA AND VOMITING
     Dosage: FREQUENCY UNKNOWN.
     Route: 042
     Dates: start: 20100112, end: 20100112
  5. SOLDESAM [Concomitant]
     Dosage: FREQUENCY UNKNOWN.
     Route: 042
     Dates: start: 20100112, end: 20100112
  6. FARGANESSE [Concomitant]
     Dosage: FREQUENCY UNKNOWN.
     Route: 042
     Dates: start: 20100112, end: 20100112

REACTIONS (1)
  - PULMONARY OEDEMA [None]
